FAERS Safety Report 10063514 (Version 1)
Quarter: 2014Q2

REPORT INFORMATION
  Report Type: Spontaneous
  Country: IT (occurrence: IT)
  Receive Date: 20140407
  Receipt Date: 20140407
  Transmission Date: 20141212
  Serious: Yes (Death)
  Sender: FDA-Public Use
  Company Number: IT-ELI_LILLY_AND_COMPANY-IT201404000614

PATIENT
  Age: 90 Year
  Sex: Female

DRUGS (10)
  1. HUMALOG LISPRO [Suspect]
     Indication: DIABETES MELLITUS
     Dosage: 32 IU, QD
     Route: 058
     Dates: start: 20120101, end: 20130517
  2. ALLOPURINOL [Concomitant]
     Dosage: 300 MG, UNK
     Route: 048
  3. IMOVANE [Concomitant]
     Dosage: 0.5 DF, UNK
     Route: 048
  4. CARDIOASPIRIN [Concomitant]
     Dosage: 100 MG, UNK
     Route: 048
  5. PLAVIX [Concomitant]
     Dosage: 75 MG, UNK
     Route: 048
  6. PEPTAZOL                           /01263204/ [Concomitant]
     Dosage: 40 MG, UNK
     Route: 048
  7. TRIATEC                            /00885601/ [Concomitant]
     Dosage: 2.5 MG, UNK
     Route: 048
  8. LASIX                              /00032601/ [Concomitant]
     Dosage: 500 MG, UNK
     Route: 048
  9. INTRAFER                           /00023507/ [Concomitant]
     Route: 048
  10. CARDICOR [Concomitant]
     Dosage: 1.25 MG, UNK
     Route: 048

REACTIONS (1)
  - Metabolic acidosis [Fatal]
